FAERS Safety Report 23552866 (Version 2)
Quarter: 2024Q2

REPORT INFORMATION
  Report Type: Spontaneous
  Country: FI (occurrence: FI)
  Receive Date: 20240222
  Receipt Date: 20240405
  Transmission Date: 20240716
  Serious: Yes (Other)
  Sender: FDA-Public Use
  Company Number: FI-ABBVIE-5649743

PATIENT
  Sex: Male
  Weight: 101 kg

DRUGS (5)
  1. RINVOQ [Suspect]
     Active Substance: UPADACITINIB
     Indication: Colitis ulcerative
     Dosage: FORM STRENGTH 45 MILLIGRAM
     Route: 048
     Dates: start: 20240104, end: 20240205
  2. Valganciclovir hydrochloride (Valcyte) [Concomitant]
     Indication: Product used for unknown indication
     Dates: start: 20240104, end: 20240125
  3. Loperamide hydrochloride (Lopex) [Concomitant]
     Indication: Product used for unknown indication
     Dosage: FORM STRENGTH: 2 MILLIGRAM?FREQUENCY TEXT: 1-2 TIME A DAY IF NEEDED
  4. Tinzaparin sodium (Innohep) [Concomitant]
     Indication: Product used for unknown indication
     Dates: start: 20240103, end: 20240110
  5. PREDNISOLONE [Concomitant]
     Active Substance: PREDNISOLONE
     Indication: Product used for unknown indication
     Dates: start: 20231204, end: 20240129

REACTIONS (4)
  - Embolism venous [Recovered/Resolved]
  - Pain in extremity [Unknown]
  - Intermittent claudication [Unknown]
  - Platelet count increased [Unknown]

NARRATIVE: CASE EVENT DATE: 20240101
